FAERS Safety Report 4403680-X (Version None)
Quarter: 2004Q3

REPORT INFORMATION
  Report Type: 
  Country: None (occurrence: None)
  Receive Date: 20040721
  Receipt Date: 20040715
  Transmission Date: 20050211
  Serious: Yes (Other)
  Sender: FDA-Public Use
  Company Number: PHEH2004US07634

PATIENT
  Age: 87 Year
  Sex: Male

DRUGS (1)
  1. MIACALCIN [Suspect]
     Indication: BONE DISORDER
     Dosage: 200 IU, QD
     Route: 045
     Dates: start: 20020101

REACTIONS (3)
  - AMNESIA [None]
  - DRUG INEFFECTIVE [None]
  - HIP FRACTURE [None]
